FAERS Safety Report 7031311-1 (Version None)
Quarter: 2010Q4

REPORT INFORMATION
  Report Type: 
  Country: None (occurrence: None)
  Receive Date: 20101006
  Receipt Date: 20100924
  Transmission Date: 20110411
  Serious: Yes (Other)
  Sender: FDA-Public Use
  Company Number: IT-CELGENEUS-083-21880-10072888

PATIENT
  Sex: Male

DRUGS (1)
  1. REVLIMID [Suspect]
     Indication: MYELOMA RECURRENCE
     Route: 048
     Dates: start: 20100616, end: 20100708

REACTIONS (2)
  - ATELECTASIS [None]
  - HYPERPYREXIA [None]
